FAERS Safety Report 6138767-7 (Version None)
Quarter: 2009Q1

REPORT INFORMATION
  Report Type: 
  Country: None (occurrence: None)
  Receive Date: 20090327
  Receipt Date: 20090311
  Transmission Date: 20090719
  Serious: Yes (Disabling)
  Sender: FDA-Public Use
  Company Number: 090319-0000544

PATIENT
  Age: 10 Year
  Sex: Female

DRUGS (3)
  1. INDOCIN [Suspect]
     Indication: PATENT DUCTUS ARTERIOSUS
     Dosage: 0.1 MG/KG;QD;IVDRP
     Route: 041
  2. FUROSEMIDE [Suspect]
     Indication: DRUG USE FOR UNKNOWN INDICATION
     Dosage: 1 MG/KG;QD;IV
     Route: 042
  3. MEFENAMIC ACID [Concomitant]

REACTIONS (7)
  - ACIDOSIS [None]
  - ATHETOSIS [None]
  - BRAIN STEM AUDITORY EVOKED RESPONSE ABNORMAL [None]
  - DYSTONIA [None]
  - KERNICTERUS [None]
  - MUSCLE TIGHTNESS [None]
  - NUCLEAR MAGNETIC RESONANCE IMAGING BRAIN ABNORMAL [None]
